FAERS Safety Report 7310856-0 (Version None)
Quarter: 2011Q1

REPORT INFORMATION
  Report Type: 
  Country: None (occurrence: None)
  Receive Date: 20110224
  Receipt Date: 20101211
  Transmission Date: 20110831
  Serious: Yes (Hospitalization)
  Sender: FDA-Public Use
  Company Number: FR-PFIZER INC-FR-WYE-G05983410

PATIENT
  Sex: Male

DRUGS (5)
  1. NOVATREX [Suspect]
     Indication: POLYARTHRITIS
     Dosage: 4 DF, WEEKLY
     Route: 048
  2. CELEBREX [Suspect]
     Dosage: 200 MG, 1X/DAY
     Route: 048
     Dates: start: 20091208, end: 20091210
  3. SPECIAFOLDINE [Concomitant]
     Route: 065
  4. FLECTOR [Concomitant]
     Dosage: UNK
     Route: 061
     Dates: start: 20091208
  5. HUMIRA [Suspect]
     Indication: POLYARTHRITIS
     Dosage: 1 DF, 1X/2 WK
     Route: 058
     Dates: start: 20090201

REACTIONS (3)
  - STAPHYLOCOCCAL ABSCESS [None]
  - TRAUMATIC HAEMATOMA [None]
  - POST-TRAUMATIC PAIN [None]
